FAERS Safety Report 20605383 (Version 1)
Quarter: 2022Q1

REPORT INFORMATION
  Report Type: Spontaneous
  Country: US (occurrence: US)
  Receive Date: 20220317
  Receipt Date: 20220317
  Transmission Date: 20220423
  Serious: No
  Sender: FDA-Public Use
  Company Number: US-TEVA-2022-US-2009401

PATIENT
  Age: 74 Year
  Sex: Female

DRUGS (1)
  1. BUPRENORPHINE [Suspect]
     Active Substance: BUPRENORPHINE
     Indication: Scoliosis
     Dosage: 20 MCG/HR
     Route: 062
     Dates: start: 202107

REACTIONS (4)
  - Rash [Recovered/Resolved]
  - Spinal disorder [Unknown]
  - Product adhesion issue [Unknown]
  - Shoulder operation [Unknown]

NARRATIVE: CASE EVENT DATE: 20210701
